FAERS Safety Report 17545801 (Version 1)
Quarter: 2020Q1

REPORT INFORMATION
  Report Type: Spontaneous
  Country: DE (occurrence: DE)
  Receive Date: 20200316
  Receipt Date: 20200316
  Transmission Date: 20200409
  Serious: Yes (Hospitalization, Other)
  Sender: FDA-Public Use
  Company Number: DE-MYLANLABS-2020M1026560

PATIENT
  Age: 54 Year
  Sex: Female
  Weight: 68 kg

DRUGS (7)
  1. AIMOVIG [Suspect]
     Active Substance: ERENUMAB-AOOE
     Dosage: 70 MG, QMO
     Route: 058
     Dates: start: 201905, end: 201906
  2. AIMOVIG [Suspect]
     Active Substance: ERENUMAB-AOOE
     Indication: MIGRAINE
     Dosage: UNK
     Route: 065
  3. BISOPROLOL [Suspect]
     Active Substance: BISOPROLOL
     Indication: HYPERTENSION
     Dosage: 5 UNK, QD
     Route: 048
     Dates: start: 2016
  4. CANDESARTAN. [Suspect]
     Active Substance: CANDESARTAN
     Indication: HYPERTENSION
     Dosage: 8 MG, QD
     Route: 048
     Dates: start: 2016
  5. GYNOKADIN                          /00045401/ [Suspect]
     Active Substance: ESTRADIOL
     Indication: HORMONE REPLACEMENT THERAPY
     Dosage: UNK QD (4 PUMP ACTUATIONS)
     Route: 062
     Dates: start: 2016
  6. AIMOVIG [Suspect]
     Active Substance: ERENUMAB-AOOE
     Indication: MIGRAINE
     Dosage: 70 MG, QMO
     Route: 058
     Dates: start: 201811, end: 201812
  7. AIMOVIG [Suspect]
     Active Substance: ERENUMAB-AOOE
     Dosage: 70 MG, QMO
     Route: 058
     Dates: start: 201903, end: 201906

REACTIONS (15)
  - Pruritus [Recovered/Resolved]
  - Psoriatic arthropathy [Unknown]
  - Depression [Unknown]
  - Trigeminal neuralgia [Unknown]
  - Herpes zoster [Unknown]
  - Histamine intolerance [Unknown]
  - Liver function test increased [Recovered/Resolved]
  - Arteriospasm coronary [Unknown]
  - Transaminases increased [Recovered/Resolved]
  - Rash maculo-papular [Recovered/Resolved]
  - Hyperlipidaemia [Unknown]
  - Migraine [Unknown]
  - Hepatitis acute [Recovered/Resolved]
  - Hypertension [Unknown]
  - Liver function test abnormal [Recovered/Resolved]

NARRATIVE: CASE EVENT DATE: 201811
